FAERS Safety Report 21633694 (Version 3)
Quarter: 2023Q1

REPORT INFORMATION
  Report Type: Spontaneous
  Country: US (occurrence: US)
  Receive Date: 20221123
  Receipt Date: 20230303
  Transmission Date: 20230418
  Serious: Yes (Other)
  Sender: FDA-Public Use
  Company Number: US-PFIZER INC-PV202200108695

PATIENT
  Age: 53 Year
  Sex: Male
  Weight: 74.83 kg

DRUGS (1)
  1. ZITHROMAX [Suspect]
     Active Substance: AZITHROMYCIN DIHYDRATE
     Indication: Bacterial infection
     Dosage: 1000 MG (2X500 MG)
     Dates: start: 20180930, end: 20180930

REACTIONS (5)
  - Deafness [Not Recovered/Not Resolved]
  - Depression suicidal [Unknown]
  - Disease recurrence [Not Recovered/Not Resolved]
  - Tinnitus [Not Recovered/Not Resolved]
  - Quality of life decreased [Unknown]

NARRATIVE: CASE EVENT DATE: 20180930
